FAERS Safety Report 5006102-3 (Version None)
Quarter: 2006Q1

REPORT INFORMATION
  Report Type: 
  Country: None (occurrence: None)
  Receive Date: 20060328
  Receipt Date: 20060220
  Transmission Date: 20060701
  Serious: No
  Sender: FDA-Public Use
  Company Number: 06P-163-0325610-00

PATIENT
  Age: 42 Year
  Sex: Female
  Weight: 103.5 kg

DRUGS (5)
  1. HUMIRA [Suspect]
     Indication: RHEUMATOID ARTHRITIS
     Dosage: 40 MG, 1 IN 1 WK, SUBCUTANEOUS
     Route: 058
     Dates: start: 20050101
  2. HYDROXYCUT [Concomitant]
  3. CLONAZEPAM [Concomitant]
  4. TRAZODONE HCL [Concomitant]
  5. NAPROXEN [Concomitant]

REACTIONS (3)
  - CHEST PAIN [None]
  - SWELLING FACE [None]
  - URTICARIA [None]
